FAERS Safety Report 19680466 (Version 1)
Quarter: 2021Q3

REPORT INFORMATION
  Report Type: Spontaneous
  Country: US (occurrence: US)
  Receive Date: 20210810
  Receipt Date: 20210810
  Transmission Date: 20211014
  Serious: No
  Sender: FDA-Public Use
  Company Number: US-BAYER-2021-188260

PATIENT

DRUGS (3)
  1. KOMBUCHA [Concomitant]
     Active Substance: DIETARY SUPPLEMENT
  2. MIRALAX [Suspect]
     Active Substance: POLYETHYLENE GLYCOL 3350
     Dosage: UNK
  3. FIBER [Concomitant]
     Active Substance: PSYLLIUM HUSK
     Dosage: 3 DF

REACTIONS (1)
  - Drug ineffective [Unknown]
